FAERS Safety Report 12626482 (Version 1)
Quarter: 2016Q3

REPORT INFORMATION
  Report Type: Spontaneous
  Country: US (occurrence: US)
  Receive Date: 20160805
  Receipt Date: 20160805
  Transmission Date: 20161109
  Serious: Yes (Hospitalization)
  Sender: FDA-Public Use
  Company Number: US-SA-2016SA138062

PATIENT
  Age: 73 Year
  Sex: Female

DRUGS (2)
  1. CHOLECALCIFEROL [Suspect]
     Active Substance: CHOLECALCIFEROL
     Dosage: DOSE:5000 UNIT(S)
     Route: 065
  2. ERGOCALCIFEROL. [Suspect]
     Active Substance: ERGOCALCIFEROL
     Dosage: DOSE:5000 UNIT(S)
     Route: 065

REACTIONS (1)
  - Hypercalcaemia [Unknown]
